FAERS Safety Report 12162781 (Version 4)
Quarter: 2017Q1

REPORT INFORMATION
  Report Type: Report from Study
  Country: JP (occurrence: JP)
  Receive Date: 20160309
  Receipt Date: 20170203
  Transmission Date: 20170428
  Serious: Yes (Disabling)
  Sender: FDA-Public Use
  Company Number: JP-SA-2016SA045212

PATIENT
  Age: 78 Year
  Sex: Male
  Weight: 46.4 kg

DRUGS (16)
  1. JEVTANA [Suspect]
     Active Substance: CABAZITAXEL
     Indication: PROSTATE CANCER STAGE IV
     Dosage: 25 MG/BODY
     Route: 042
     Dates: start: 20150714, end: 20150714
  2. JEVTANA [Suspect]
     Active Substance: CABAZITAXEL
     Indication: PROSTATE CANCER STAGE IV
     Dosage: 25 MG/BODY
     Route: 042
     Dates: start: 20151013, end: 20151013
  3. JEVTANA [Suspect]
     Active Substance: CABAZITAXEL
     Indication: PROSTATE CANCER STAGE IV
     Dosage: 25MG/BODY
     Route: 042
     Dates: start: 20150616, end: 20150616
  4. JEVTANA [Suspect]
     Active Substance: CABAZITAXEL
     Indication: PROSTATE CANCER STAGE IV
     Dosage: 25 MG/BODY
     Route: 042
     Dates: start: 20150908, end: 20150908
  5. JEVTANA [Suspect]
     Active Substance: CABAZITAXEL
     Indication: PROSTATE CANCER STAGE IV
     Dosage: 30 MG/BODY
     Route: 042
     Dates: start: 20151110, end: 20151110
  6. FAMOTIDINE. [Concomitant]
     Active Substance: FAMOTIDINE
     Indication: PREMEDICATION
     Route: 042
     Dates: start: 20150811, end: 20150811
  7. LEUPRORELIN [Concomitant]
     Active Substance: LEUPROLIDE ACETATE
     Route: 058
  8. SILODOSIN [Concomitant]
     Active Substance: SILODOSIN
     Route: 048
  9. POLARAMINE [Concomitant]
     Active Substance: DEXCHLORPHENIRAMINE MALEATE
     Indication: PREMEDICATION
     Route: 042
     Dates: start: 20150811, end: 20150811
  10. TRAMADOL. [Concomitant]
     Active Substance: TRAMADOL
     Route: 048
  11. NOVAMIN [Concomitant]
     Active Substance: PROCHLORPERAZINE MALEATE
     Indication: PREMEDICATION
     Route: 048
     Dates: start: 20150811, end: 20150811
  12. REBAMIPIDE [Concomitant]
     Active Substance: REBAMIPIDE
     Route: 048
  13. JEVTANA [Suspect]
     Active Substance: CABAZITAXEL
     Indication: PROSTATE CANCER STAGE IV
     Dosage: 25 MG/BODY
     Route: 042
     Dates: start: 20150811, end: 20150811
  14. PREDONINE [Concomitant]
     Active Substance: PREDNISOLONE
     Indication: PROSTATE CANCER
     Dates: start: 20150115, end: 20151215
  15. G-LASTA [Concomitant]
     Active Substance: PEGFILGRASTIM
     Indication: PROPHYLAXIS
     Route: 048
     Dates: start: 20150617, end: 20151110
  16. TADALAFIL [Concomitant]
     Active Substance: TADALAFIL
     Route: 048

REACTIONS (7)
  - Optic neuropathy [Not Recovered/Not Resolved]
  - Visual acuity reduced [Not Recovered/Not Resolved]
  - Visual field defect [Not Recovered/Not Resolved]
  - Myopia [Not Recovered/Not Resolved]
  - Colour vision tests abnormal [Not Recovered/Not Resolved]
  - Colour blindness [Not Recovered/Not Resolved]
  - Ophthalmological examination abnormal [Not Recovered/Not Resolved]

NARRATIVE: CASE EVENT DATE: 20150814
